FAERS Safety Report 10010130 (Version 1)
Quarter: 2014Q1

REPORT INFORMATION
  Report Type: Spontaneous
  Country: US (occurrence: US)
  Receive Date: 20140312
  Receipt Date: 20140312
  Transmission Date: 20141002
  Serious: No
  Sender: FDA-Public Use
  Company Number: US-INCYTE CORPORATION-2013IN001565

PATIENT
  Sex: Female

DRUGS (7)
  1. JAKAFI [Suspect]
     Indication: BLOOD DISORDER
     Dosage: 10 MG, BID
     Route: 048
     Dates: start: 20121003
  2. JAKAFI [Suspect]
     Dosage: UNSPECIFIED
     Route: 048
  3. ASPIRIN [Concomitant]
     Dosage: 81 MG, UNK
     Route: 048
  4. PROCRIT [Concomitant]
     Dosage: 10000 UT, UNK
  5. ENALAPRIL MALEATE [Concomitant]
     Dosage: 5 MG, UNK
     Route: 048
  6. ALLOPURINOL [Concomitant]
     Dosage: 100 MG, UNK
     Route: 048
  7. OCUVITE [Concomitant]

REACTIONS (1)
  - Platelet count abnormal [Unknown]
